FAERS Safety Report 13700135 (Version 1)
Quarter: 2017Q2

REPORT INFORMATION
  Report Type: Spontaneous
  Country: US (occurrence: US)
  Receive Date: 20170629
  Receipt Date: 20170629
  Transmission Date: 20170830
  Serious: Yes (Other)
  Sender: FDA-Public Use
  Company Number: US-NAPPMUNDI-USA-2017-0139600

PATIENT
  Sex: Male

DRUGS (5)
  1. OXYCODONE HYDROCHLORIDE (SIMILAR TO NDA 22-272) [Suspect]
     Active Substance: OXYCODONE HYDROCHLORIDE
     Indication: BACK INJURY
     Dosage: 30 MG, BID
     Route: 048
     Dates: start: 2010, end: 20170619
  2. DIAZEPAM. [Suspect]
     Active Substance: DIAZEPAM
     Indication: BACK INJURY
     Dosage: 5 MG, DAILY
     Route: 048
     Dates: end: 20170619
  3. GABAPENTIN. [Suspect]
     Active Substance: GABAPENTIN
     Indication: BACK INJURY
     Dosage: 800 MG, QID
     Route: 048
     Dates: end: 20170619
  4. OXYCONTIN [Suspect]
     Active Substance: OXYCODONE HYDROCHLORIDE
     Indication: BACK INJURY
     Dosage: 80 MG, TID
     Route: 048
     Dates: end: 20170619
  5. IBUPROFEN. [Suspect]
     Active Substance: IBUPROFEN
     Indication: BACK INJURY
     Dosage: 800 MG, TID
     Route: 048
     Dates: end: 20170619

REACTIONS (6)
  - Pain [Not Recovered/Not Resolved]
  - Drug withdrawal syndrome [Not Recovered/Not Resolved]
  - Dyspnoea [Not Recovered/Not Resolved]
  - Off label use [Recovered/Resolved]
  - Tooth loss [Not Recovered/Not Resolved]
  - Toxicity to various agents [Not Recovered/Not Resolved]
